FAERS Safety Report 10718466 (Version 2)
Quarter: 2015Q1

REPORT INFORMATION
  Report Type: Spontaneous
  Country: IT (occurrence: IT)
  Receive Date: 20150119
  Receipt Date: 20150325
  Transmission Date: 20150721
  Serious: Yes (Hospitalization)
  Sender: FDA-Public Use
  Company Number: IT-009507513-1501ITA005386

PATIENT
  Age: 88 Year
  Sex: Female

DRUGS (8)
  1. APONIL (LACIDIPINE) [Concomitant]
  2. LASIX [Suspect]
     Active Substance: FUROSEMIDE
     Indication: ANURIA
     Dosage: 1 DOSE (UNIT) DAILY
     Route: 048
     Dates: start: 20140101, end: 20141222
  3. TRITTICO [Concomitant]
     Active Substance: TRAZODONE HYDROCHLORIDE
     Route: 048
  4. LORAZEPAM. [Concomitant]
     Active Substance: LORAZEPAM
     Route: 048
  5. SAMYR [Concomitant]
     Active Substance: METHIONINE
  6. LOSARTAN POTASSIUM AND HYDROCHLOROTHIAZIDE [Suspect]
     Active Substance: HYDROCHLOROTHIAZIDE\LOSARTAN POTASSIUM
     Indication: HYPERTENSION
     Dosage: 1 DOSE (UNIT) DAILY
     Route: 048
     Dates: start: 20140101, end: 20141222
  7. CLEXANE (ENOXAPARIN SODIUM) [Concomitant]
     Active Substance: ENOXAPARIN SODIUM
     Route: 058
  8. PANTOPRAZOLE [Concomitant]
     Active Substance: PANTOPRAZOLE SODIUM
     Route: 048

REACTIONS (5)
  - Hypocalcaemia [Unknown]
  - Hyponatraemia [Unknown]
  - Dyspnoea [Unknown]
  - Hypokalaemia [Unknown]
  - Anuria [Unknown]

NARRATIVE: CASE EVENT DATE: 20141222
